FAERS Safety Report 25538397 (Version 1)
Quarter: 2025Q3

REPORT INFORMATION
  Report Type: Report from Study
  Country: AU (occurrence: AU)
  Receive Date: 20250710
  Receipt Date: 20250710
  Transmission Date: 20251021
  Serious: Yes (Other)
  Sender: RANBAXY
  Company Number: AU-SUN PHARMACEUTICAL INDUSTRIES LTD-2025R1-515463

PATIENT
  Age: 78 Year
  Sex: Male

DRUGS (2)
  1. ABIRATERONE [Suspect]
     Active Substance: ABIRATERONE
     Indication: Hormone-refractory prostate cancer
     Route: 065
  2. DOCETAXEL [Suspect]
     Active Substance: DOCETAXEL
     Indication: Hormone-refractory prostate cancer
     Route: 065

REACTIONS (1)
  - Neoplasm progression [Unknown]
